FAERS Safety Report 7884428-3 (Version None)
Quarter: 2011Q4

REPORT INFORMATION
  Report Type: 
  Country: None (occurrence: None)
  Receive Date: 20111102
  Receipt Date: 20110701
  Transmission Date: 20120403
  Serious: No
  Sender: FDA-Public Use
  Company Number: US-ASTRAZENECA-2011SE39608

PATIENT
  Age: 55 Year
  Sex: Male

DRUGS (10)
  1. IBUPROFEN [Concomitant]
     Route: 048
  2. LOMOTIL [Concomitant]
     Dosage: 2.5 TO 25MG AS REQUIRED
     Route: 048
  3. ATIVAN [Concomitant]
     Route: 048
  4. CALCIUM CARBONATE ANTACID [Concomitant]
     Route: 048
  5. SYNTHROID [Concomitant]
  6. PROCHLORPERAZINE MALEATE [Concomitant]
  7. VANDETANIB [Suspect]
     Indication: THYROID CANCER
     Route: 048
  8. MULTI-VITAMINS [Concomitant]
  9. CALCITRIOL [Concomitant]
     Route: 048
  10. AMBIEN [Concomitant]
     Route: 048

REACTIONS (2)
  - HYPOAESTHESIA [None]
  - VISION BLURRED [None]
